FAERS Safety Report 5890005-6 (Version None)
Quarter: 2008Q3

REPORT INFORMATION
  Report Type: 
  Country: None (occurrence: None)
  Receive Date: 20080919
  Receipt Date: 20080910
  Transmission Date: 20090109
  Serious: Yes (Other)
  Sender: FDA-Public Use
  Company Number: US-PFIZER INC-2004079272

PATIENT
  Sex: Female
  Weight: 77.6 kg

DRUGS (15)
  1. ZYRTEC [Suspect]
     Indication: HYPERSENSITIVITY
     Route: 048
  2. CELEBREX [Suspect]
     Indication: ARTHRITIS
     Dosage: TEXT:200 MG DAILY
     Route: 065
     Dates: start: 20080101, end: 20080801
  3. DETROL LA [Suspect]
     Indication: URINARY INCONTINENCE
     Dosage: TEXT:UNKNOWN
     Route: 065
  4. XALATAN [Suspect]
     Indication: GLAUCOMA
     Dosage: TEXT:1 DROP IN EACH EYE ONCE DAILY
     Route: 047
  5. VESICARE [Suspect]
     Indication: DRUG USE FOR UNKNOWN INDICATION
     Dosage: TEXT:UNKNOWN
     Route: 065
  6. ALL OTHER THERAPEUTIC PRODUCTS [Suspect]
     Indication: DRUG USE FOR UNKNOWN INDICATION
     Dosage: TEXT:UNKNOWN
     Route: 065
  7. BEXTRA [Concomitant]
     Route: 065
  8. VIOXX [Concomitant]
     Route: 065
  9. LISINOPRIL [Concomitant]
     Indication: HYPERTENSION
     Route: 065
  10. ARMOUR THYROID [Concomitant]
     Indication: DRUG USE FOR UNKNOWN INDICATION
     Dosage: TEXT:30 MG-FREQ:AS NEEDED
     Route: 065
  11. TRAMADOL HCL [Concomitant]
     Indication: PAIN
     Dosage: TEXT:50 MG-FREQ:AS NEEDED
     Route: 065
  12. MELOXICAM [Concomitant]
     Indication: ARTHRITIS
     Dosage: TEXT:UNKNOWN
     Route: 065
  13. PHILLIPS LAXCAPS [Concomitant]
     Indication: CONSTIPATION
     Dosage: TEXT:UNKNOWN
     Route: 048
  14. SENOKOT [Concomitant]
     Indication: CONSTIPATION
     Dosage: TEXT:UNSPECIFIED
     Route: 048
  15. TROSPIUM [Concomitant]
     Indication: URINARY INCONTINENCE
     Dosage: TEXT:20 MG
     Route: 065

REACTIONS (13)
  - ARTHRITIS [None]
  - CONSTIPATION [None]
  - CYSTITIS [None]
  - DIZZINESS [None]
  - DRY MOUTH [None]
  - EYE IRRITATION [None]
  - GLAUCOMA [None]
  - LIP DRY [None]
  - OEDEMA PERIPHERAL [None]
  - OPTIC NERVE INJURY [None]
  - PAIN IN EXTREMITY [None]
  - RASH [None]
  - URINARY INCONTINENCE [None]
